FAERS Safety Report 9914694 (Version 2)
Quarter: 2014Q1

REPORT INFORMATION
  Report Type: Spontaneous
  Country: IT (occurrence: IT)
  Receive Date: 20140220
  Receipt Date: 20140220
  Transmission Date: 20141002
  Serious: Yes (Other)
  Sender: FDA-Public Use
  Company Number: IT-TEVA-461012ISR

PATIENT
  Age: 48 Year
  Sex: Female

DRUGS (14)
  1. MYFENAX 500 MG [Suspect]
     Indication: NEPHROTIC SYNDROME
     Dosage: 2000 MILLIGRAM DAILY;
     Route: 048
     Dates: start: 20120701, end: 20140120
  2. RANITIDINA [Concomitant]
  3. SUCRALFATO [Concomitant]
  4. ANGELIQ [Concomitant]
  5. APROVEL 150 MG [Concomitant]
  6. CARDIOASPIRIN 100 MG [Concomitant]
     Dosage: GASTRO-RESISTANT TABLET
  7. CARDURA 4 MG [Concomitant]
     Dosage: 2 MILLIGRAM DAILY; MODIFIED RELEASE TABLET
  8. DEURSIL 450 MG [Concomitant]
     Dosage: PROLONGED-RELEASE HARD CAPSULE
  9. DIBASE 300000 IU/ML [Concomitant]
  10. LASIX 25 MG [Concomitant]
  11. TENORMIN 100 MG [Concomitant]
     Dosage: 50 MILLIGRAM DAILY;
  12. TRIATEC 5 MG [Concomitant]
  13. TOTALIP 20 MG [Concomitant]
  14. ZYLORIC 300 MG [Concomitant]

REACTIONS (3)
  - Glomerulonephritis [Unknown]
  - Proteinuria [Unknown]
  - Off label use [Unknown]
